FAERS Safety Report 5287199-2 (Version None)
Quarter: 2007Q1

REPORT INFORMATION
  Report Type: 
  Country: None (occurrence: None)
  Receive Date: 20070330
  Receipt Date: 20070322
  Transmission Date: 20070707
  Serious: Yes (Other)
  Sender: FDA-Public Use
  Company Number: 2007BI004952

PATIENT
  Age: 56 Year
  Sex: Female

DRUGS (1)
  1. NATALIZUMAB [Suspect]
     Indication: MULTIPLE SCLEROSIS
     Dosage: ; IV
     Route: 042
     Dates: start: 20070204

REACTIONS (8)
  - BALANCE DISORDER [None]
  - COMPLEX PARTIAL SEIZURES [None]
  - CONVULSION [None]
  - DYSARTHRIA [None]
  - FATIGUE [None]
  - FEELING ABNORMAL [None]
  - SPEECH DISORDER [None]
  - WEIGHT INCREASED [None]
